FAERS Safety Report 21260833 (Version 1)
Quarter: 2022Q3

REPORT INFORMATION
  Report Type: Report from Study
  Country: US (occurrence: US)
  Receive Date: 20220826
  Receipt Date: 20220826
  Transmission Date: 20221027
  Serious: Yes (Hospitalization)
  Sender: FDA-Public Use
  Company Number: US-Accord-274592

PATIENT
  Age: 52 Year
  Sex: Male

DRUGS (1)
  1. CLOZAPINE [Suspect]
     Active Substance: CLOZAPINE
     Indication: Product used for unknown indication
     Dosage: 150 MG
     Route: 048

REACTIONS (2)
  - Cellulitis [Unknown]
  - Neutrophilia [Unknown]

NARRATIVE: CASE EVENT DATE: 20220818
